FAERS Safety Report 7260533-X (Version None)
Quarter: 2011Q1

REPORT INFORMATION
  Report Type: 
  Country: None (occurrence: None)
  Receive Date: 20110130
  Receipt Date: 20101230
  Transmission Date: 20110831
  Serious: No
  Sender: FDA-Public Use
  Company Number: US-ABBOTT-11P-163-0694797-00

PATIENT
  Sex: Female
  Weight: 53.572 kg

DRUGS (4)
  1. IBUPROFEN [Concomitant]
     Indication: PRODUCT USED FOR UNKNOWN INDICATION
  2. HUMIRA [Suspect]
     Indication: ANKYLOSING SPONDYLITIS
     Route: 058
     Dates: start: 20070101, end: 20101201
  3. BIRTH CONTROL PILLS [Concomitant]
     Indication: CONTRACEPTION
  4. IMODIUM [Concomitant]
     Indication: COLITIS ULCERATIVE

REACTIONS (1)
  - OEDEMA GENITAL [None]
